FAERS Safety Report 18227345 (Version 1)
Quarter: 2020Q3

REPORT INFORMATION
  Report Type: Report from Study
  Country: US (occurrence: US)
  Receive Date: 20200903
  Receipt Date: 20200903
  Transmission Date: 20201103
  Serious: Yes (Other)
  Sender: FDA-Public Use
  Company Number: US-MYLANLABS-2020M1076010

PATIENT
  Sex: Female

DRUGS (3)
  1. CARBIDOPA/LEVODOPA [Suspect]
     Active Substance: CARBIDOPA\LEVODOPA
     Indication: PERRY SYNDROME
     Dosage: UNK UNK, BID
     Route: 048
  2. CARBIDOPA/LEVODOPA [Suspect]
     Active Substance: CARBIDOPA\LEVODOPA
     Dosage: UNK, Q4H
     Route: 048
  3. CARBIDOPA/LEVODOPA [Suspect]
     Active Substance: CARBIDOPA\LEVODOPA
     Indication: PERRY SYNDROME
     Dosage: UNK UNK, TID
     Route: 048

REACTIONS (3)
  - Dyskinesia [Unknown]
  - On and off phenomenon [Unknown]
  - Off label use [Unknown]
